FAERS Safety Report 20909170 (Version 2)
Quarter: 2022Q2

REPORT INFORMATION
  Report Type: Spontaneous
  Country: US (occurrence: US)
  Receive Date: 20220603
  Receipt Date: 20220603
  Transmission Date: 20220721
  Serious: No
  Sender: FDA-Public Use
  Company Number: US-APOTEX-2021AP024002

PATIENT

DRUGS (2)
  1. CYCLOSPORINE [Suspect]
     Active Substance: CYCLOSPORINE
     Indication: Cystitis interstitial
     Dosage: TWICE A DAY IN EQUAL DOSES
     Route: 065
  2. CYCLOSPORINE [Suspect]
     Active Substance: CYCLOSPORINE
     Dosage: 2.8 MILLIGRAM/KILOGRAM, QD
     Route: 065

REACTIONS (3)
  - Drug level increased [Unknown]
  - Off label use [Unknown]
  - Treatment failure [Unknown]
